FAERS Safety Report 8589585 (Version 7)
Quarter: 2012Q4

REPORT INFORMATION
  Report Type: 
  Country: US (occurrence: US)
  Receive Date: 20120531
  Receipt Date: 20121114
  Transmission Date: 20130627
  Serious: Yes (Hospitalization, Disabling, Other)
  Sender: FDA-Public Use
  Company Number: US-009507513-1205USA04492

PATIENT

DRUGS (9)
  1. FOSAMAX [Suspect]
     Indication: OSTEOPOROSIS
     Dosage: 70 mg, qw
     Route: 048
     Dates: start: 20020301, end: 20080306
  2. FOSAMAX [Suspect]
     Indication: OSTEOPENIA
  3. FOSAMAX [Suspect]
     Indication: OSTEOPOROSIS
     Dosage: 70 mg, qw
     Route: 048
     Dates: start: 20080307, end: 200905
  4. OS-CAL D [Concomitant]
     Indication: OSTEOPOROSIS
     Dosage: 500 mg, tid
     Dates: start: 1990
  5. CORTICOSTEROIDS (UNSPECIFIED) [Concomitant]
     Dosage: UNK
     Dates: start: 200201, end: 200801
  6. IMITREX (SUMATRIPTAN SUCCINATE) [Concomitant]
     Indication: MIGRAINE
     Dosage: UNK
     Dates: start: 200201
  7. ALPRAZOLAM [Concomitant]
     Indication: ANXIETY
     Dosage: UNK
     Dates: start: 200201
  8. ENDOCET [Concomitant]
     Indication: PAIN
     Dosage: UNK
     Dates: start: 200201, end: 200807
  9. HYDROCODONE [Concomitant]
     Indication: PAIN
     Dosage: UNK
     Dates: start: 200202

REACTIONS (36)
  - Open reduction of fracture [Recovering/Resolving]
  - Closed fracture manipulation [Unknown]
  - Tonsillectomy [Unknown]
  - Radiculotomy [Recovering/Resolving]
  - Femur fracture [Not Recovered/Not Resolved]
  - Osteoporosis [Not Recovered/Not Resolved]
  - Stress fracture [Unknown]
  - Low turnover osteopathy [Not Recovered/Not Resolved]
  - Wrist fracture [Recovered/Resolved]
  - Anaemia macrocytic [Recovered/Resolved]
  - Hypokalaemia [Recovered/Resolved]
  - Depression [Unknown]
  - Hip fracture [Recovering/Resolving]
  - Meniscus injury [Recovered/Resolved]
  - Patellofemoral pain syndrome [Unknown]
  - Medical device removal [Unknown]
  - Lumbar spinal stenosis [Unknown]
  - Spondylolisthesis [Unknown]
  - Tobacco abuse [Unknown]
  - Urinary incontinence [Recovered/Resolved]
  - VIIth nerve paralysis [Unknown]
  - Herpes zoster [Recovered/Resolved]
  - Limb asymmetry [Not Recovered/Not Resolved]
  - Diabetes mellitus [Unknown]
  - Vitamin D deficiency [Unknown]
  - Calcium deficiency [Unknown]
  - Hormone level abnormal [Unknown]
  - Radius fracture [Unknown]
  - Cast removal [Unknown]
  - Oedema peripheral [Unknown]
  - Arthralgia [Unknown]
  - Constipation [Unknown]
  - Fall [Unknown]
  - Back pain [Unknown]
  - Pain in extremity [Unknown]
  - Fracture nonunion [Not Recovered/Not Resolved]
